FAERS Safety Report 10232794 (Version 1)
Quarter: 2014Q2

REPORT INFORMATION
  Report Type: Spontaneous
  Country: IT (occurrence: None)
  Receive Date: 20140610
  Receipt Date: 20140610
  Transmission Date: 20141212
  Serious: Yes (Hospitalization)
  Sender: FDA-Public Use
  Company Number: AUR-APL-2014-06202

PATIENT
  Age: 56 Year
  Sex: Female

DRUGS (1)
  1. METFORMIN [Suspect]
     Indication: TYPE 2 DIABETES MELLITUS
     Dosage: TOTAL
     Route: 048
     Dates: start: 20090525, end: 20140525

REACTIONS (10)
  - Anuria [None]
  - Vomiting [None]
  - Blood bicarbonate decreased [None]
  - Blood lactic acid increased [None]
  - Drug level increased [None]
  - Dialysis [None]
  - Diarrhoea [None]
  - Metabolic acidosis [None]
  - Coma [None]
  - Diabetic ketoacidosis [None]
